FAERS Safety Report 12783244 (Version 1)
Quarter: 2016Q3

REPORT INFORMATION
  Report Type: Spontaneous
  Country: US (occurrence: US)
  Receive Date: 20160926
  Receipt Date: 20160926
  Transmission Date: 20161109
  Serious: Yes (Hospitalization)
  Sender: FDA-Public Use
  Company Number: None

PATIENT
  Age: 60 Year
  Sex: Female

DRUGS (6)
  1. POTASSIUM [Concomitant]
     Active Substance: POTASSIUM
  2. LASIX [Concomitant]
     Active Substance: FUROSEMIDE
  3. EXJADE [Suspect]
     Active Substance: DEFERASIROX
     Indication: PULMONARY ARTERIAL HYPERTENSION
     Route: 048
     Dates: start: 20160314
  4. COUMADIN [Concomitant]
     Active Substance: WARFARIN SODIUM
  5. FOLIC ACID. [Concomitant]
     Active Substance: FOLIC ACID
  6. PEPCID [Concomitant]
     Active Substance: FAMOTIDINE

REACTIONS (3)
  - Blindness [None]
  - Seizure [None]
  - Myocardial infarction [None]

NARRATIVE: CASE EVENT DATE: 201609
